FAERS Safety Report 9739425 (Version 1)
Quarter: 2013Q4

REPORT INFORMATION
  Report Type: Spontaneous
  Country: US (occurrence: US)
  Receive Date: 20131209
  Receipt Date: 20131209
  Transmission Date: 20140711
  Serious: Yes (Hospitalization)
  Sender: FDA-Public Use
  Company Number: US-BRISTOL-MYERS SQUIBB COMPANY-19377712

PATIENT
  Age: 60 Year
  Sex: Female

DRUGS (2)
  1. IXEMPRA [Suspect]
     Indication: BREAST CANCER
     Dates: start: 2013
  2. HERCEPTIN [Suspect]
     Indication: BREAST CANCER

REACTIONS (2)
  - Haematemesis [Unknown]
  - Diarrhoea [Unknown]
